FAERS Safety Report 7363027-6 (Version None)
Quarter: 2011Q1

REPORT INFORMATION
  Report Type: 
  Country: None (occurrence: None)
  Receive Date: 20110321
  Receipt Date: 20110315
  Transmission Date: 20110831
  Serious: No
  Sender: FDA-Public Use
  Company Number: US-PFIZER INC-2011056975

PATIENT
  Sex: Female
  Weight: 81.633 kg

DRUGS (2)
  1. CLONIDINE [Concomitant]
     Indication: BLOOD PRESSURE ABNORMAL
     Dosage: 0.1 MG, 2X/DAY
     Route: 048
  2. PREMPRO [Suspect]
     Indication: HORMONE REPLACEMENT THERAPY
     Dosage: 0.45MG/1.5MG DAILY
     Route: 048

REACTIONS (9)
  - FEELING ABNORMAL [None]
  - DEPRESSION [None]
  - PALPITATIONS [None]
  - ANXIETY [None]
  - HOT FLUSH [None]
  - NERVOUSNESS [None]
  - PSYCHIATRIC SYMPTOM [None]
  - VAGINAL HAEMORRHAGE [None]
  - DRUG INEFFECTIVE [None]
